FAERS Safety Report 9476803 (Version 1)
Quarter: 2013Q3

REPORT INFORMATION
  Report Type: Spontaneous
  Country: FR (occurrence: FR)
  Receive Date: 20130826
  Receipt Date: 20130826
  Transmission Date: 20140515
  Serious: Yes (Hospitalization)
  Sender: FDA-Public Use
  Company Number: FR-SANOFI-AVENTIS-2013SA083932

PATIENT
  Age: 84 Year
  Sex: Male

DRUGS (11)
  1. PLAVIX [Suspect]
     Indication: PRODUCT USED FOR UNKNOWN INDICATION
     Route: 048
     Dates: start: 20130304, end: 20130313
  2. LOVENOX [Suspect]
     Indication: PRODUCT USED FOR UNKNOWN INDICATION
     Route: 058
     Dates: start: 20130304, end: 20130307
  3. CARDENSIEL [Suspect]
     Indication: PRODUCT USED FOR UNKNOWN INDICATION
     Dosage: STRENGTH: 7.5 MG
     Route: 048
     Dates: start: 20130304, end: 20130313
  4. AMLOR [Suspect]
     Indication: PRODUCT USED FOR UNKNOWN INDICATION
     Dosage: STRENGTH:5MG
     Route: 048
     Dates: start: 20130304, end: 20130313
  5. RAMIPRIL [Suspect]
     Indication: PRODUCT USED FOR UNKNOWN INDICATION
     Route: 048
     Dates: start: 2008, end: 20130313
  6. COUMADINE [Concomitant]
     Route: 048
     Dates: start: 2011
  7. PANTOPRAZOLE [Concomitant]
     Route: 048
     Dates: start: 2008
  8. MONICOR L.P. [Concomitant]
     Route: 048
     Dates: start: 2010
  9. FUROSEMIDE [Concomitant]
     Route: 048
     Dates: start: 201102
  10. ATORVASTATIN [Concomitant]
     Route: 048
     Dates: start: 2008
  11. KARDEGIC [Concomitant]
     Route: 048
     Dates: start: 2008

REACTIONS (6)
  - Angioedema [Recovered/Resolved]
  - Oedema [Recovered/Resolved]
  - Erythema [Recovered/Resolved]
  - Lacrimation increased [Recovered/Resolved]
  - Urticaria [Recovered/Resolved]
  - Pruritus [Recovered/Resolved]
